FAERS Safety Report 11614171 (Version 1)
Quarter: 2015Q4

REPORT INFORMATION
  Report Type: Spontaneous
  Country: BR (occurrence: BR)
  Receive Date: 20151008
  Receipt Date: 20151008
  Transmission Date: 20160304
  Serious: Yes (Other)
  Sender: FDA-Public Use
  Company Number: BR-CONCORDIA PHARMACEUTICALS INC.-CO-ZN-BR-2015-048

PATIENT
  Age: 60 Year
  Sex: Male

DRUGS (2)
  1. ANTAK [Suspect]
     Active Substance: RANITIDINE HYDROCHLORIDE
     Indication: GENITAL DISCOMFORT
  2. ANTAK [Suspect]
     Active Substance: RANITIDINE HYDROCHLORIDE
     Indication: DYSPEPSIA
     Dates: start: 201303

REACTIONS (7)
  - Metastases to lung [None]
  - Abdominal discomfort [None]
  - Skin haemorrhage [None]
  - Drug effect decreased [None]
  - Off label use [None]
  - Oral pain [None]
  - Impaired healing [None]

NARRATIVE: CASE EVENT DATE: 201505
